FAERS Safety Report 7237083-X (Version None)
Quarter: 2011Q1

REPORT INFORMATION
  Report Type: 
  Country: None (occurrence: None)
  Receive Date: 20110121
  Receipt Date: 20110113
  Transmission Date: 20110831
  Serious: Yes (Hospitalization, Other)
  Sender: FDA-Public Use
  Company Number: US-ASTRAZENECA-2006UW20181

PATIENT
  Age: 50 Year
  Sex: Male
  Weight: 118.4 kg

DRUGS (33)
  1. SEROQUEL [Suspect]
     Indication: DEPRESSION
     Dosage: 100 MG TO 200 MG
     Route: 048
     Dates: start: 20000119, end: 20041106
  2. SEROQUEL [Suspect]
     Route: 048
     Dates: start: 20031001, end: 20041201
  3. CHLORTHALIDONE [Concomitant]
  4. ZYPREXA [Concomitant]
     Dosage: TAKE 10 MG TWO TABLETS
     Dates: start: 20000105
  5. LEXAPRO [Concomitant]
     Dosage: 30 MG TOTAL DAILY DOSE
     Dates: start: 20030101
  6. CELEXA [Concomitant]
     Dosage: 40 MG TO 60 MG
     Route: 048
     Dates: start: 20000301
  7. EFFEXOR [Concomitant]
     Dosage: 75-150 MG
     Route: 048
  8. CYMBALTA [Concomitant]
     Route: 048
  9. MAVIK [Concomitant]
     Dates: start: 20040927
  10. LITHIUM [Concomitant]
     Dates: start: 20040927
  11. CEPHALEXIN [Concomitant]
     Dates: start: 20000306
  12. SEROQUEL [Suspect]
     Indication: SCHIZOPHRENIA
     Dosage: 100 MG TO 200 MG
     Route: 048
     Dates: start: 20000119, end: 20041106
  13. SEROQUEL [Suspect]
     Dosage: 100-600 MG
     Route: 048
     Dates: start: 20000201
  14. GEODON [Concomitant]
     Dates: start: 20041103
  15. GEODON [Concomitant]
     Dates: start: 20060501
  16. CLONAZEPAM [Concomitant]
     Route: 048
  17. HYDROCHLOROTHIAZIDE [Concomitant]
     Dates: start: 20060530
  18. RISPERDAL [Suspect]
     Indication: DEPRESSION
     Route: 065
     Dates: start: 20000301, end: 20030801
  19. LISINOPRIL [Concomitant]
     Route: 048
  20. SEROQUEL [Suspect]
     Route: 048
     Dates: start: 20031001, end: 20041201
  21. RISPERDAL [Suspect]
     Indication: SCHIZOPHRENIA
     Route: 065
     Dates: start: 20000301, end: 20030801
  22. RISPERDAL [Suspect]
     Dates: start: 20000301
  23. NEURONTIN [Concomitant]
     Dosage: 300 MG TWO CAPSULES THREE TIMES A DAY
     Dates: start: 20000118
  24. DIAZEPAM [Concomitant]
     Dates: start: 20000105
  25. RISPERDAL [Suspect]
     Dates: start: 20000301
  26. ZYPREXA [Concomitant]
     Dates: start: 20000101
  27. PRIMIDONE [Concomitant]
     Dates: start: 20060901
  28. SONATA [Concomitant]
     Dosage: TAKE 10 MG ONE CAPSULE
     Dates: start: 20000406
  29. SEROQUEL [Suspect]
     Dosage: 100-600 MG
     Route: 048
     Dates: start: 20000201
  30. NORVASC [Concomitant]
     Route: 048
  31. EFFEXOR [Concomitant]
     Dosage: TAKE 75 MG TWO CAPSULES
     Dates: start: 20000124
  32. PROCHLORPERAZINE [Concomitant]
  33. PROPRANOLOL [Concomitant]
     Dosage: 40 MG TO 80 MG
     Dates: start: 20000301

REACTIONS (7)
  - ERECTILE DYSFUNCTION [None]
  - VISUAL IMPAIRMENT [None]
  - PARAESTHESIA [None]
  - INFLUENZA LIKE ILLNESS [None]
  - DIABETES MELLITUS [None]
  - DIZZINESS [None]
  - VISION BLURRED [None]
